FAERS Safety Report 11242534 (Version 1)
Quarter: 2015Q3

REPORT INFORMATION
  Report Type: Spontaneous
  Country: US (occurrence: None)
  Receive Date: 20150701
  Receipt Date: 20150701
  Transmission Date: 20151125
  Serious: No
  Sender: FDA-Public Use
  Company Number: None

PATIENT
  Age: 91 Year
  Sex: Male
  Weight: 59.42 kg

DRUGS (1)
  1. CILOSTAZOL. [Suspect]
     Active Substance: CILOSTAZOL
     Indication: ATROPHIE BLANCHE
     Route: 048
     Dates: start: 20150511, end: 20150514

REACTIONS (1)
  - Headache [None]

NARRATIVE: CASE EVENT DATE: 20150501
